FAERS Safety Report 21999730 (Version 1)
Quarter: 2023Q1

REPORT INFORMATION
  Report Type: 
  Country: None (occurrence: PT)
  Receive Date: 20230216
  Receipt Date: 20230216
  Transmission Date: 20230418
  Serious: Yes (Hospitalization, Other)
  Sender: FDA-Public Use
  Company Number: None

PATIENT
  Age: 42 Year
  Sex: Male

DRUGS (1)
  1. DICLOFENAC SODIUM [Suspect]
     Active Substance: DICLOFENAC SODIUM

REACTIONS (4)
  - Haemolytic anaemia [Recovered/Resolved]
  - Jaundice [Recovered/Resolved]
  - Thrombocytopenia [Recovered/Resolved]
  - Anuria [Recovered/Resolved]
